FAERS Safety Report 23770591 (Version 1)
Quarter: 2024Q2

REPORT INFORMATION
  Report Type: Spontaneous
  Country: US (occurrence: US)
  Receive Date: 20240422
  Receipt Date: 20240422
  Transmission Date: 20240716
  Serious: Yes (Other)
  Sender: FDA-Public Use
  Company Number: US-KinderFarms, LLC-2155867

PATIENT
  Age: 4 Year
  Sex: Male

DRUGS (1)
  1. INFANTS PAIN AND FEVER [Suspect]
     Active Substance: ACETAMINOPHEN
     Indication: Pyrexia

REACTIONS (1)
  - Seizure [Unknown]
